FAERS Safety Report 21838956 (Version 1)
Quarter: 2023Q1

REPORT INFORMATION
  Report Type: Spontaneous
  Country: US (occurrence: None)
  Receive Date: 20230108
  Receipt Date: 20230108
  Transmission Date: 20230417
  Serious: Yes (Hospitalization)
  Sender: FDA-Public Use
  Company Number: None

PATIENT
  Age: 71 Year
  Sex: Male
  Weight: 138 kg

DRUGS (1)
  1. ATORVASTATIN [Suspect]
     Active Substance: ATORVASTATIN
     Indication: Hyperlipidaemia
     Dates: start: 20180328, end: 20221202

REACTIONS (5)
  - Rhabdomyolysis [None]
  - Cardiac failure congestive [None]
  - Fall [None]
  - Acute kidney injury [None]
  - Acute kidney injury [None]

NARRATIVE: CASE EVENT DATE: 20221202
